FAERS Safety Report 5188778-3 (Version None)
Quarter: 2006Q4

REPORT INFORMATION
  Report Type: 
  Country: None (occurrence: None)
  Receive Date: 20061221
  Receipt Date: 20061024
  Transmission Date: 20070319
  Serious: Yes (Hospitalization)
  Sender: FDA-Public Use
  Company Number: HU-ELI_LILLY_AND_COMPANY-HU200610004306

PATIENT
  Age: 69 Year
  Sex: Female
  Weight: 67 kg

DRUGS (14)
  1. HUMAN INSULIN (RDNA ORIGIN) NPH [Suspect]
     Indication: DIABETES MELLITUS
     Dosage: 16 IU, EACH MORNING
     Route: 058
     Dates: start: 20050221
  2. HUMAN INSULIN (RDNA ORIGIN) NPH [Suspect]
     Dosage: 6 IU, EACH EVENING
     Dates: start: 20050221
  3. ASPIRIN [Concomitant]
     Indication: PROPHYLAXIS
     Dosage: 100 MG, UNK
     Dates: start: 20050204
  4. PLAVIX                                  /UNK/ [Concomitant]
     Indication: PROPHYLAXIS
     Dosage: UNK, UNK
     Dates: start: 20050204, end: 20060921
  5. CONCOR [Concomitant]
     Indication: PROPHYLAXIS
     Dosage: 5 MG, UNK
     Dates: start: 20050204
  6. TRITACE [Concomitant]
     Indication: HYPERTENSION
     Dosage: UNK, UNK
     Dates: start: 20050204, end: 20060922
  7. FUROSEMIDE [Concomitant]
     Indication: CORONARY ARTERY DISEASE
     Dates: start: 20050204
  8. KALIUM-R [Concomitant]
     Indication: CORONARY ARTERY DISEASE
     Dates: start: 20050204
  9. ZOCOR [Concomitant]
     Indication: PROPHYLAXIS
     Dates: start: 20050204
  10. QUAMATEL [Concomitant]
     Indication: PROPHYLAXIS
     Dosage: 40 MG, 2/D
     Dates: start: 20050204
  11. NORVASC [Concomitant]
     Indication: HYPERTENSION
     Dosage: 10 MG, EACH EVENING
     Dates: start: 20060531
  12. SEROPRAM                                /SCH/ [Concomitant]
     Dosage: 20 MG, UNKNOWN
     Dates: start: 20060923
  13. RENITEC [Concomitant]
     Indication: HYPERTENSION
     Dosage: 20 MG, EACH EVENING
     Dates: start: 20060923
  14. ENALAPRIL MALEATE AND HYDROCHLOROTHIAZIDE [Concomitant]
     Indication: HYPERTENSION
     Dosage: 12.5 MG, EACH MORNING
     Dates: start: 20060923

REACTIONS (7)
  - BLOOD GLUCOSE INCREASED [None]
  - BLOOD PRESSURE INCREASED [None]
  - DIZZINESS [None]
  - DYSTHYMIC DISORDER [None]
  - INTRACARDIAC THROMBUS [None]
  - MYOCARDIAL ISCHAEMIA [None]
  - NAUSEA [None]
